FAERS Safety Report 11824719 (Version 3)
Quarter: 2016Q2

REPORT INFORMATION
  Report Type: Report from Study
  Country: ES (occurrence: ES)
  Receive Date: 20151210
  Receipt Date: 20160615
  Transmission Date: 20160815
  Serious: Yes (Life-Threatening, Hospitalization, Other)
  Sender: FDA-Public Use
  Company Number: ES-TAKEDA-2015MPI007707

PATIENT
  Age: 62 Year
  Sex: Female
  Weight: 98 kg

DRUGS (13)
  1. IXAZOMIB [Suspect]
     Active Substance: IXAZOMIB
     Indication: PLASMA CELL MYELOMA
     Dosage: 4 MG, UNK
     Route: 048
     Dates: start: 20151026, end: 20151109
  2. DEXAMETHASONE. [Concomitant]
     Active Substance: DEXAMETHASONE
     Indication: PLASMA CELL MYELOMA
     Dosage: 20 MG, UNK
     Route: 048
     Dates: start: 20151026, end: 20151106
  3. EUTIROX [Concomitant]
     Active Substance: LEVOTHYROXINE SODIUM
     Dosage: 125 ?G, UNK
  4. ALDACTONE [Concomitant]
     Active Substance: SPIRONOLACTONE
     Dosage: 100 MG, UNK
  5. LENALIDOMIDE [Suspect]
     Active Substance: LENALIDOMIDE
     Indication: PLASMA CELL MYELOMA
     Dosage: 15 MG, UNK
     Route: 048
     Dates: start: 20151026, end: 20151111
  6. ACENOCOUMAROL [Concomitant]
     Active Substance: ACENOCOUMAROL
  7. OMEPRAZOLE. [Concomitant]
     Active Substance: OMEPRAZOLE
     Dosage: 20 MG, UNK
  8. LORAZEPAM. [Concomitant]
     Active Substance: LORAZEPAM
     Dosage: 1 MG, UNK
  9. ACFOL [Concomitant]
     Active Substance: FOLIC ACID
     Dosage: 5 MG, UNK
  10. FUROSEMIDE. [Concomitant]
     Active Substance: FUROSEMIDE
  11. ALLOPURINOL. [Concomitant]
     Active Substance: ALLOPURINOL
     Dosage: 300 MG, UNK
  12. ACYCLOVIR                          /00587301/ [Concomitant]
     Active Substance: ACYCLOVIR
     Dosage: 800 MG, UNK
  13. SEPTRIN [Concomitant]
     Active Substance: SULFAMETHOXAZOLE\TRIMETHOPRIM
     Dosage: 800 MG, UNK

REACTIONS (1)
  - Escherichia sepsis [Recovered/Resolved]

NARRATIVE: CASE EVENT DATE: 20151112
